FAERS Safety Report 23363199 (Version 3)
Quarter: 2024Q2

REPORT INFORMATION
  Report Type: Spontaneous
  Country: CH (occurrence: CH)
  Receive Date: 20240103
  Receipt Date: 20240625
  Transmission Date: 20240716
  Serious: Yes (Other)
  Sender: FDA-Public Use
  Company Number: CH-BAUSCH-BL-2023-019330

PATIENT
  Age: 71 Year
  Sex: Female

DRUGS (7)
  1. HYDROCORTISONE [Suspect]
     Active Substance: HYDROCORTISONE\HYDROCORTISONE ACETATE
     Indication: Acute myeloid leukaemia
     Dosage: TRIPLE INTRATHECAL CHEMOTHERAPY
     Route: 037
  2. CYTARABINE [Suspect]
     Active Substance: CYTARABINE
     Indication: Acute myeloid leukaemia
     Dosage: INDUCTION CHEMOTHERAPY, DAYS 1-7
     Route: 065
  3. CYTARABINE [Suspect]
     Active Substance: CYTARABINE
     Dosage: TRIPLE INTRATHECAL CHEMOTHERAPY
     Route: 037
  4. DAUNORUBICIN [Suspect]
     Active Substance: DAUNORUBICIN
     Indication: Acute myeloid leukaemia
     Dosage: INDUCTION CHEMOTHERAPY, DAYS 1, 2 AND 3
     Route: 065
  5. IMATINIB [Suspect]
     Active Substance: IMATINIB
     Indication: Acute myeloid leukaemia
     Dosage: INDUCTION CHEMOTHERAPY
     Route: 065
  6. DASATINIB [Suspect]
     Active Substance: DASATINIB
     Indication: Acute myeloid leukaemia
     Dosage: INDUCTION CHEMOTHERAPY, FROM DAY 3
     Route: 065
  7. METHOTREXATE [Suspect]
     Active Substance: METHOTREXATE
     Indication: Acute myeloid leukaemia
     Dosage: TRIPLE INTRATHECAL CHEMOTHERAPY
     Route: 037

REACTIONS (1)
  - Neutropenia [Recovered/Resolved]
